FAERS Safety Report 7250363-7 (Version None)
Quarter: 2011Q1

REPORT INFORMATION
  Report Type: 
  Country: None (occurrence: None)
  Receive Date: 20110128
  Receipt Date: 20100331
  Transmission Date: 20110831
  Serious: No
  Sender: FDA-Public Use
  Company Number: A0854238A

PATIENT
  Sex: Male
  Weight: 3.4 kg

DRUGS (4)
  1. COMBIVIR [Suspect]
     Indication: ANTIRETROVIRAL THERAPY
     Route: 065
     Dates: end: 20090407
  2. KALETRA [Suspect]
     Indication: ANTIRETROVIRAL THERAPY
     Route: 065
     Dates: start: 20081001, end: 20090407
  3. ANESTHESIA [Concomitant]
  4. RETROVIR [Suspect]
     Indication: ANTIRETROVIRAL THERAPY
     Route: 042
     Dates: start: 20090407, end: 20090407

REACTIONS (3)
  - DRUG EXPOSURE DURING PREGNANCY [None]
  - NORMAL NEWBORN [None]
  - ALPHA 1 FOETOPROTEIN ABNORMAL [None]
